FAERS Safety Report 11590578 (Version 1)
Quarter: 2015Q4

REPORT INFORMATION
  Report Type: Spontaneous
  Country: US (occurrence: US)
  Receive Date: 20151002
  Receipt Date: 20151002
  Transmission Date: 20160304
  Serious: No
  Sender: FDA-Public Use
  Company Number: US-GLAXOSMITHKLINE-US2015140831

PATIENT
  Age: 10 Year
  Sex: Male

DRUGS (1)
  1. VENTOLIN HFA [Suspect]
     Active Substance: ALBUTEROL SULFATE
     Indication: ASTHMA
     Dosage: 2 PUFF(S), QID
     Route: 055
     Dates: start: 2011

REACTIONS (3)
  - Drug administered to patient of inappropriate age [Unknown]
  - Wheezing [Recovering/Resolving]
  - Device use error [Unknown]

NARRATIVE: CASE EVENT DATE: 20150930
